FAERS Safety Report 14870694 (Version 1)
Quarter: 2018Q2

REPORT INFORMATION
  Report Type: Spontaneous
  Country: US (occurrence: US)
  Receive Date: 20180509
  Receipt Date: 20180509
  Transmission Date: 20180711
  Serious: Yes (Other)
  Sender: FDA-Public Use
  Company Number: US-MYLANLABS-2018M1029878

PATIENT
  Sex: Female

DRUGS (5)
  1. TEMAZEPAM. [Concomitant]
     Active Substance: TEMAZEPAM
     Indication: INSOMNIA
     Dosage: UNK
  2. MUCINEX [Concomitant]
     Active Substance: GUAIFENESIN
     Indication: EAR DISORDER
  3. CLARITIN [Concomitant]
     Active Substance: LORATADINE
     Indication: EAR DISORDER
     Dosage: UNK
  4. MUCINEX [Concomitant]
     Active Substance: GUAIFENESIN
     Indication: EAR PAIN
     Dosage: UNK, BID
  5. DYMISTA [Suspect]
     Active Substance: AZELASTINE HYDROCHLORIDE\FLUTICASONE PROPIONATE
     Indication: HYPERSENSITIVITY
     Dosage: 137 ?G, BID, INTRANASAL 1 SPRAY IN EACH NOSTRIL
     Route: 045
     Dates: start: 201804, end: 20180426

REACTIONS (5)
  - Cough [Recovered/Resolved]
  - Dyspnoea [Recovered/Resolved]
  - Choking [Recovered/Resolved]
  - Oropharyngeal pain [Unknown]
  - Breast pain [Recovered/Resolved]

NARRATIVE: CASE EVENT DATE: 20180425
